FAERS Safety Report 12923568 (Version 4)
Quarter: 2018Q3

REPORT INFORMATION
  Report Type: Spontaneous
  Country: US (occurrence: US)
  Receive Date: 20161109
  Receipt Date: 20180924
  Transmission Date: 20181010
  Serious: No
  Sender: FDA-Public Use
  Company Number: US-PFIZER INC-2016519074

PATIENT
  Age: 37 Year
  Sex: Female
  Weight: 46.71 kg

DRUGS (6)
  1. FOLIC ACID. [Concomitant]
     Active Substance: FOLIC ACID
     Dosage: UNK
  2. CHOLESTYRAMINE. [Concomitant]
     Active Substance: CHOLESTYRAMINE
     Indication: NUTRITIONAL SUPPLEMENTATION
     Dosage: UNK (DOSE: 4) (DRINKS IT AT NIGHT SO THAT FOOD JUST DID NOT RUN THROUGH HER BODY)
  3. VITAMIN D [Concomitant]
     Active Substance: CHOLECALCIFEROL
     Dosage: UNK
  4. VYVANSE [Concomitant]
     Active Substance: LISDEXAMFETAMINE DIMESYLATE
     Indication: ATTENTION DEFICIT/HYPERACTIVITY DISORDER
     Dosage: 30 MG, UNK
  5. EFFEXOR XR [Suspect]
     Active Substance: VENLAFAXINE HYDROCHLORIDE
     Indication: MENTAL DISORDER
     Dosage: 75 MG, 1X/DAY
     Dates: start: 200509
  6. REMICADE [Concomitant]
     Active Substance: INFLIXIMAB
     Indication: CROHN^S DISEASE
     Dosage: UNK

REACTIONS (10)
  - Depression [Unknown]
  - Nervousness [Unknown]
  - Malaise [Unknown]
  - Feeling abnormal [Unknown]
  - Withdrawal syndrome [Unknown]
  - Asthenia [Unknown]
  - Pain [Unknown]
  - Emotional disorder [Unknown]
  - Drug dose omission [Unknown]
  - Loss of personal independence in daily activities [Not Recovered/Not Resolved]
